FAERS Safety Report 8874221 (Version 1)
Quarter: 2012Q4

REPORT INFORMATION
  Report Type: 
  Country: AU (occurrence: AU)
  Receive Date: 20121031
  Receipt Date: 20121031
  Transmission Date: 20130627
  Serious: Yes (Death, Other)
  Sender: FDA-Public Use
  Company Number: AU-BRISTOL-MYERS SQUIBB COMPANY-16655276

PATIENT
  Age: 65 Year
  Sex: Female
  Weight: 64 kg

DRUGS (6)
  1. ORENCIA [Suspect]
     Indication: RHEUMATOID ARTHRITIS
     Route: 042
     Dates: start: 201009, end: 20120510
  2. METHOTREXATE [Concomitant]
  3. FOLIC ACID [Concomitant]
  4. KARVEA [Concomitant]
  5. CALCIUM [Concomitant]
  6. AZITHROMYCIN [Concomitant]

REACTIONS (2)
  - Death [Fatal]
  - Metastatic malignant melanoma [Not Recovered/Not Resolved]
